FAERS Safety Report 11874000 (Version 1)
Quarter: 2015Q4

REPORT INFORMATION
  Report Type: Spontaneous
  Country: US (occurrence: US)
  Receive Date: 20151229
  Receipt Date: 20151229
  Transmission Date: 20160305
  Serious: Yes (Other)
  Sender: FDA-Public Use
  Company Number: US-CIPLA LTD.-2015US09665

PATIENT

DRUGS (3)
  1. FLUNITRAZEPAM [Suspect]
     Active Substance: FLUNITRAZEPAM
     Dosage: 2 MG, QD
     Route: 064
  2. CLOMIPRAMINE [Suspect]
     Active Substance: CLOMIPRAMINE
     Route: 064
  3. RISPERIDONE. [Suspect]
     Active Substance: RISPERIDONE
     Dosage: 1 MG, QD
     Route: 064

REACTIONS (11)
  - Nystagmus [Unknown]
  - Irritability [Unknown]
  - Cyanosis [Unknown]
  - Drug withdrawal syndrome [Unknown]
  - Foetal exposure during pregnancy [Unknown]
  - Hyperreflexia [Unknown]
  - Muscle contractions involuntary [Unknown]
  - Muscle twitching [Unknown]
  - Muscle disorder [Unknown]
  - Tachypnoea [Unknown]
  - Tremor [Unknown]
